FAERS Safety Report 23647141 (Version 1)
Quarter: 2024Q1

REPORT INFORMATION
  Report Type: Spontaneous
  Country: US (occurrence: US)
  Receive Date: 20240319
  Receipt Date: 20240319
  Transmission Date: 20240410
  Serious: Yes (Other)
  Sender: FDA-Public Use
  Company Number: US-UCBSA-2024012996

PATIENT
  Age: 74 Year
  Sex: Male

DRUGS (1)
  1. CIMZIA [Suspect]
     Active Substance: CERTOLIZUMAB PEGOL
     Indication: Rheumatoid arthritis
     Dosage: 200 MILLIGRAM, MONTHLY (QM) (ONCE A MONTH)
     Route: 058

REACTIONS (4)
  - Pneumonia [Recovered/Resolved]
  - Bronchitis chronic [Recovered/Resolved]
  - Loss of personal independence in daily activities [Recovered/Resolved]
  - Off label use [Unknown]

NARRATIVE: CASE EVENT DATE: 20240201
